FAERS Safety Report 6293565-9 (Version None)
Quarter: 2009Q3

REPORT INFORMATION
  Report Type: 
  Country: None (occurrence: None)
  Receive Date: 20090803
  Receipt Date: 20090722
  Transmission Date: 20100115
  Serious: Yes (Other)
  Sender: FDA-Public Use
  Company Number: PT-JNJFOC-20080701882

PATIENT
  Sex: Male

DRUGS (5)
  1. REMICADE [Suspect]
     Dosage: 400 MG
     Route: 042
  2. REMICADE [Suspect]
     Dosage: MAINTENANCE THERAPY
     Route: 042
  3. REMICADE [Suspect]
     Indication: COLITIS ULCERATIVE
     Dosage: INDUCTION THERAPY
     Route: 042
  4. PREDNISOLONE [Concomitant]
     Route: 048
  5. PREDNISOLONE [Concomitant]
     Indication: DRUG EFFECT DECREASED
     Route: 048

REACTIONS (3)
  - COLITIS ULCERATIVE [None]
  - CYTOMEGALOVIRUS INFECTION [None]
  - THERAPEUTIC RESPONSE DECREASED [None]
